FAERS Safety Report 11591126 (Version 2)
Quarter: 2016Q1

REPORT INFORMATION
  Report Type: Report from Study
  Country: US (occurrence: US)
  Receive Date: 20151003
  Receipt Date: 20160316
  Transmission Date: 20160525
  Serious: Yes (Other)
  Sender: FDA-Public Use
  Company Number: US-AMGEN-USASL2015100098

PATIENT
  Age: 58 Year
  Sex: Male

DRUGS (1)
  1. ENBREL [Suspect]
     Active Substance: ETANERCEPT
     Indication: RHEUMATOID ARTHRITIS
     Dosage: UNK
     Route: 065
     Dates: start: 20150316

REACTIONS (3)
  - Skin cancer [Not Recovered/Not Resolved]
  - Pulmonary embolism [Unknown]
  - Thrombosis [Unknown]

NARRATIVE: CASE EVENT DATE: 2015
